FAERS Safety Report 24006771 (Version 1)
Quarter: 2024Q2

REPORT INFORMATION
  Report Type: Spontaneous
  Country: SA (occurrence: SA)
  Receive Date: 20240624
  Receipt Date: 20240624
  Transmission Date: 20240716
  Serious: Yes (Other)
  Sender: FDA-Public Use
  Company Number: SA-ELI_LILLY_AND_COMPANY-SA202406011268

PATIENT
  Sex: Male

DRUGS (1)
  1. MOUNJARO [Suspect]
     Active Substance: TIRZEPATIDE
     Indication: Type 1 diabetes mellitus
     Dosage: UNK UNK, WEEKLY (1/W)
     Route: 065

REACTIONS (5)
  - Diabetic ketoacidosis [Unknown]
  - Chills [Unknown]
  - Tremor [Unknown]
  - Off label use [Unknown]
  - Fatigue [Unknown]
